FAERS Safety Report 7984650-1 (Version None)
Quarter: 2011Q4

REPORT INFORMATION
  Report Type: 
  Country: None (occurrence: None)
  Receive Date: 20111216
  Receipt Date: 20111213
  Transmission Date: 20120403
  Serious: Yes (Death)
  Sender: FDA-Public Use
  Company Number: US-VERTEX PHARMACEUTICALS INC.-AE-2011-004921

PATIENT
  Sex: Female

DRUGS (6)
  1. PEGASYS [Concomitant]
     Indication: HEPATITIS C
     Route: 058
     Dates: start: 20111025
  2. RIBAVIRIN [Concomitant]
     Indication: HEPATITIS C
     Dates: start: 20111025
  3. FLONASE [Concomitant]
  4. SOMA [Concomitant]
  5. INCIVEK [Suspect]
     Indication: HEPATITIS C
     Route: 048
     Dates: start: 20111025
  6. AMLODIPINE [Concomitant]

REACTIONS (1)
  - ACCIDENTAL OVERDOSE [None]
